FAERS Safety Report 4462279-X (Version None)
Quarter: 2004Q3

REPORT INFORMATION
  Report Type: 
  Country: None (occurrence: None)
  Receive Date: 20040929
  Receipt Date: 20040916
  Transmission Date: 20050211
  Serious: Yes (Hospitalization)
  Sender: FDA-Public Use
  Company Number: FR-GLAXOSMITHKLINE-B0346495A

PATIENT
  Age: 58 Year
  Sex: Male
  Weight: 68 kg

DRUGS (5)
  1. ALKERAN [Suspect]
     Indication: AMYLOIDOSIS
     Dosage: 260MG PER DAY
     Route: 042
     Dates: start: 20040803, end: 20040803
  2. LASILIX [Concomitant]
     Route: 042
     Dates: start: 20040803, end: 20040813
  3. POLARAMINE [Concomitant]
     Route: 048
     Dates: start: 20040803
  4. MOPRAL [Concomitant]
     Dosage: 40MG PER DAY
     Route: 042
     Dates: start: 20040802
  5. ZOPHREN [Concomitant]
     Route: 042
     Dates: start: 20040803, end: 20040804

REACTIONS (4)
  - HAEMODYNAMIC INSTABILITY [None]
  - PANCYTOPENIA [None]
  - RENAL FAILURE ACUTE [None]
  - STAPHYLOCOCCAL SEPSIS [None]
